FAERS Safety Report 12154934 (Version 1)
Quarter: 2016Q1

REPORT INFORMATION
  Report Type: Report from Study
  Country: US (occurrence: US)
  Receive Date: 20160307
  Receipt Date: 20160307
  Transmission Date: 20160526
  Serious: Yes (Other)
  Sender: FDA-Public Use
  Company Number: US-ABBVIE-16K-163-1571274-00

PATIENT
  Age: 59 Year
  Sex: Male

DRUGS (1)
  1. HUMIRA [Suspect]
     Active Substance: ADALIMUMAB
     Indication: RHEUMATOID ARTHRITIS
     Route: 058
     Dates: start: 201508, end: 20160213

REACTIONS (14)
  - Vasodilatation [Recovered/Resolved]
  - Hypersensitivity [Unknown]
  - Blood pressure decreased [Unknown]
  - Peripheral swelling [Unknown]
  - Hypoaesthesia [Unknown]
  - Urticaria [Unknown]
  - Injection site pruritus [Unknown]
  - Loss of consciousness [Recovered/Resolved]
  - Injection site pruritus [Recovered/Resolved]
  - Injection site erythema [Recovered/Resolved]
  - Heart rate decreased [Recovered/Resolved]
  - Rash generalised [Recovered/Resolved]
  - Swelling face [Unknown]
  - Paraesthesia [Unknown]

NARRATIVE: CASE EVENT DATE: 201601
